FAERS Safety Report 9298321 (Version 1)
Quarter: 2012Q4

REPORT INFORMATION
  Report Type: Spontaneous
  Country: JP (occurrence: None)
  Receive Date: 20121003
  Receipt Date: 20121003
  Transmission Date: 20130627
  Serious: Yes (Hospitalization)
  Sender: FDA-Public Use
  Company Number: JP-2012-16383

PATIENT
  Sex: Male

DRUGS (2)
  1. SAMSCA (TOLVAPTAN) TABLET, 15MG MILLIGRAM(S) [Suspect]
     Indication: CARDIAC FAILURE
     Route: 048
     Dates: start: 20120910, end: 20120911
  2. DIAMOX (ACETAZOLAMIDE) [Concomitant]

REACTIONS (1)
  - Hypernatraemia [None]
